FAERS Safety Report 7601529-5 (Version None)
Quarter: 2011Q3

REPORT INFORMATION
  Report Type: 
  Country: None (occurrence: None)
  Receive Date: 20110711
  Receipt Date: 20110627
  Transmission Date: 20111222
  Serious: Yes (Other)
  Sender: FDA-Public Use
  Company Number: PHHY2011JP19645

PATIENT
  Sex: Male
  Weight: 68 kg

DRUGS (13)
  1. SULFAMETHOXAZOLE [Concomitant]
     Indication: PROPHYLAXIS
     Dosage: 01 DF, UNK
     Route: 045
     Dates: start: 20091026
  2. RED BLOOD CELLS, LEUCOCYTE DEPLETED [Concomitant]
     Dosage: 02 UNITS EVERY 2 WEEKS
     Dates: start: 20091026, end: 20091225
  3. EXJADE [Suspect]
     Dosage: 500 MG DAILY
     Route: 048
     Dates: start: 20100603
  4. RED BLOOD CELLS, LEUCOCYTE DEPLETED [Concomitant]
     Dosage: 02 UNITS EVERY 4 WEEKS
     Dates: start: 20100325
  5. ITRACONAZOLE [Concomitant]
     Indication: PROPHYLAXIS
     Dosage: 10 ML, UNK
     Route: 048
     Dates: start: 20091026
  6. ITRACONAZOLE [Concomitant]
     Dosage: 10 ML, UNK
     Route: 048
     Dates: end: 20101026
  7. PRIMOBOLAN-DEPOT INJ [Concomitant]
     Indication: MYELODYSPLASTIC SYNDROME
     Dosage: 10 MG, UNK
     Route: 048
     Dates: start: 20091026
  8. PRIMOBOLAN-DEPOT INJ [Concomitant]
     Dosage: 10 MG, UNK
     Route: 048
     Dates: end: 20101026
  9. EXJADE [Suspect]
     Indication: MYELODYSPLASTIC SYNDROME
     Dosage: 500 MG DAILY
     Route: 048
     Dates: start: 20091026, end: 20091203
  10. CLARITHROMYCIN [Concomitant]
     Indication: PROPHYLAXIS
     Dosage: 400 MG, UNK
     Route: 048
     Dates: start: 20091026
  11. ALLOPURINOL [Concomitant]
     Indication: PROPHYLAXIS
     Dosage: 100 MG, UNK
     Route: 048
     Dates: start: 20100226
  12. CLARITHROMYCIN [Concomitant]
     Dosage: 400 MG, UNK
     Route: 048
     Dates: end: 20101026
  13. ALLOPURINOL [Concomitant]
     Dosage: 100 MG, UNK
     Route: 048
     Dates: end: 20100901

REACTIONS (6)
  - WHITE BLOOD CELL COUNT DECREASED [None]
  - HAEMOGLOBIN DECREASED [None]
  - HAEMATOCRIT DECREASED [None]
  - LIVER DISORDER [None]
  - PLATELET COUNT DECREASED [None]
  - BLOOD CREATININE INCREASED [None]
